FAERS Safety Report 7084639-3 (Version None)
Quarter: 2011Q1

REPORT INFORMATION
  Report Type: 
  Country: None (occurrence: None)
  Receive Date: 20101104
  Receipt Date: 20101025
  Transmission Date: 20110831
  Serious: Yes (Other)
  Sender: FDA-Public Use
  Company Number: PHHY2010CA62771

PATIENT
  Sex: Female

DRUGS (7)
  1. ZOLEDRONIC [Suspect]
     Indication: OSTEOPOROSIS
     Dosage: 5 MG/100 ML
     Route: 042
     Dates: start: 20090923
  2. ATENOLOL [Concomitant]
     Dosage: UNK
  3. CALCIUM [Concomitant]
  4. VITAMINS [Concomitant]
  5. VITAMIN D [Concomitant]
  6. ZOLEDRONIC [Suspect]
     Dosage: 5 MG, ONCE A YEAR
     Route: 042
     Dates: start: 20100921
  7. ASPIRIN [Concomitant]

REACTIONS (9)
  - FEELING ABNORMAL [None]
  - TRANSIENT ISCHAEMIC ATTACK [None]
  - NIGHT BLINDNESS [None]
  - ARRHYTHMIA [None]
  - SUPRAVENTRICULAR TACHYCARDIA [None]
  - HYPOTENSION [None]
  - PALPITATIONS [None]
  - DYSPNOEA [None]
  - HEADACHE [None]
